FAERS Safety Report 7703620-1 (Version None)
Quarter: 2011Q3

REPORT INFORMATION
  Report Type: 
  Country: None (occurrence: None)
  Receive Date: 20110823
  Receipt Date: 20110816
  Transmission Date: 20111222
  Serious: Yes (Hospitalization, Other)
  Sender: FDA-Public Use
  Company Number: PHHY2011BR74014

PATIENT
  Sex: Male

DRUGS (7)
  1. BRILINTA [Concomitant]
     Indication: CARDIAC DISORDER
     Dosage: 1 DF, BID
     Route: 048
  2. ASPIRIN [Concomitant]
     Indication: CARDIAC DISORDER
     Dosage: 2 DF, DAILY (FROM 15 DAYS)
     Route: 048
  3. SUSTRATE [Concomitant]
     Indication: CARDIAC DISORDER
     Dosage: 1 DF, TID (FOR 5 MONTHS)
     Route: 048
  4. TRILEPTAL [Suspect]
     Indication: CONVULSION
     Dosage: 1 DF, BID
     Route: 048
  5. ROSUVASTATIN [Concomitant]
     Indication: ANTIBIOTIC THERAPY
     Dosage: 1 DF, AFTER DINNER (FROM 5 MONTHS)
     Route: 048
  6. ATENOLOL [Concomitant]
     Indication: CARDIAC DISORDER
     Dosage: 1 DF, BID (FOR ABOUT 15 YEARS)
     Route: 048
  7. PONDERAL [Concomitant]
     Indication: DEPRESSION
     Dosage: 1 DF, QHS (FROM 2 YEARS)
     Route: 048

REACTIONS (1)
  - CEREBROVASCULAR ACCIDENT [None]
